FAERS Safety Report 8597324-3 (Version None)
Quarter: 2012Q3

REPORT INFORMATION
  Report Type: 
  Country: None (occurrence: None)
  Receive Date: 20120816
  Receipt Date: 20120813
  Transmission Date: 20120928
  Serious: No
  Sender: FDA-Public Use
  Company Number: US-PFIZER INC-2012198379

PATIENT
  Age: 52 Year
  Sex: Female

DRUGS (7)
  1. NEURONTIN [Suspect]
     Indication: POST-TRAUMATIC STRESS DISORDER
     Dosage: UNK
     Dates: end: 20120801
  2. PRISTIQ [Suspect]
     Indication: POST-TRAUMATIC STRESS DISORDER
     Dosage: 50 MG, DAILY
     Dates: start: 20120802
  3. AMINOCAPROIC ACID [Concomitant]
     Dosage: UNK
  4. ACAI BERRY [Concomitant]
     Dosage: UNK
  5. KLONOPIN [Concomitant]
     Indication: POST-TRAUMATIC STRESS DISORDER
     Dosage: 0.5 MG, 3X/DAY
  6. PROBIOTICS [Concomitant]
     Dosage: UNK
  7. GARLIC [Concomitant]
     Dosage: UNK

REACTIONS (7)
  - HYPERHIDROSIS [None]
  - MOOD SWINGS [None]
  - FATIGUE [None]
  - DISTURBANCE IN ATTENTION [None]
  - DYSURIA [None]
  - IRRITABILITY [None]
  - PRURITUS GENERALISED [None]
